FAERS Safety Report 16413835 (Version 1)
Quarter: 2019Q2

REPORT INFORMATION
  Report Type: Spontaneous
  Country: FR (occurrence: FR)
  Receive Date: 20190611
  Receipt Date: 20190611
  Transmission Date: 20190711
  Serious: Yes (Hospitalization)
  Sender: FDA-Public Use
  Company Number: FR-SA-2019SA149345

PATIENT
  Age: 17 Year
  Sex: Female
  Weight: 53 kg

DRUGS (3)
  1. ZOPICLONE [Suspect]
     Active Substance: ZOPICLONE
     Indication: POISONING DELIBERATE
     Dosage: 10 TO 14 TABLET
     Route: 048
     Dates: start: 20190508, end: 20190508
  2. DOXYLAMINE SUCCINATE. [Suspect]
     Active Substance: DOXYLAMINE SUCCINATE
     Indication: POISONING DELIBERATE
     Dosage: 10 DF, TOTAL
     Route: 048
     Dates: start: 20190508, end: 20190508
  3. BROMAZEPAM [Suspect]
     Active Substance: BROMAZEPAM
     Indication: ANXIETY
     Dosage: 0.25 DF, TOTAL
     Route: 048
     Dates: start: 20190508, end: 20190508

REACTIONS (3)
  - Psychomotor skills impaired [Recovered/Resolved]
  - Somnolence [Recovered/Resolved]
  - Overdose [Unknown]

NARRATIVE: CASE EVENT DATE: 20190508
